FAERS Safety Report 23909168 (Version 1)
Quarter: 2024Q2

REPORT INFORMATION
  Report Type: Spontaneous
  Country: AF (occurrence: AF)
  Receive Date: 20240528
  Receipt Date: 20240528
  Transmission Date: 20240716
  Serious: Yes (Death, Other)
  Sender: FDA-Public Use
  Company Number: AF-MYLANLABS-2024M1047355

PATIENT
  Age: 80 Year
  Sex: Male
  Weight: 46.5 kg

DRUGS (4)
  1. PRETOMANID [Suspect]
     Active Substance: PRETOMANID
     Indication: Tuberculosis
     Dosage: 200 MILLIGRAM, QD
     Route: 048
     Dates: start: 20240424, end: 20240518
  2. LINEZOLID [Suspect]
     Active Substance: LINEZOLID
     Indication: Tuberculosis
     Dosage: 600 MILLIGRAM, QD
     Route: 048
     Dates: start: 20240424, end: 20240518
  3. BEDAQUILINE [Suspect]
     Active Substance: BEDAQUILINE
     Indication: Tuberculosis
     Dosage: 200 MILLIGRAM, QD
     Route: 048
     Dates: start: 20240424, end: 20240518
  4. MOXIFLOXACIN [Suspect]
     Active Substance: MOXIFLOXACIN
     Indication: Tuberculosis
     Dosage: 400 MILLIGRAM, QD
     Route: 048
     Dates: start: 20240424, end: 20240518

REACTIONS (3)
  - Shock haemorrhagic [Fatal]
  - Intra-abdominal haemorrhage [Fatal]
  - Procedural haemorrhage [Fatal]

NARRATIVE: CASE EVENT DATE: 20240518
